FAERS Safety Report 23004237 (Version 2)
Quarter: 2023Q4

REPORT INFORMATION
  Report Type: Spontaneous
  Country: ES (occurrence: None)
  Receive Date: 20230928
  Receipt Date: 20231011
  Transmission Date: 20240109
  Serious: Yes (Hospitalization)
  Sender: FDA-Public Use
  Company Number: 2023A219900

PATIENT
  Age: 63 Year
  Sex: Male
  Weight: 53 kg

DRUGS (3)
  1. QUETIAPINE [Suspect]
     Active Substance: QUETIAPINE
     Indication: Insomnia
     Route: 048
  2. PIMOZIDE [Suspect]
     Active Substance: PIMOZIDE
     Indication: Schizophrenia
  3. PIMOZIDE [Suspect]
     Active Substance: PIMOZIDE
     Indication: Schizophrenia
     Dosage: 10 MONTHS LATER 8 MG/DAY

REACTIONS (10)
  - Parkinsonism [Recovered/Resolved]
  - Weight decreased [Unknown]
  - Decreased appetite [Unknown]
  - Cachexia [Unknown]
  - Bradyphrenia [Unknown]
  - Dysphonia [Unknown]
  - Corneal reflex decreased [Unknown]
  - Sleep disorder [Unknown]
  - Muscle rigidity [Unknown]
  - Off label use [Unknown]
